FAERS Safety Report 14319763 (Version 4)
Quarter: 2020Q2

REPORT INFORMATION
  Report Type: Report from Study
  Country: BR (occurrence: BR)
  Receive Date: 20171222
  Receipt Date: 20200504
  Transmission Date: 20200713
  Serious: Yes (Other)
  Sender: FDA-Public Use
  Company Number: BR-BRISTOL-MYERS SQUIBB COMPANY-BMS-2017-112688

PATIENT
  Age: 59 Year
  Sex: Female

DRUGS (1)
  1. ABATACEPT [Suspect]
     Active Substance: ABATACEPT
     Indication: RHEUMATOID ARTHRITIS
     Dosage: 750 MG, QMO
     Route: 042

REACTIONS (4)
  - Oropharyngeal pain [Unknown]
  - Urinary tract infection [Unknown]
  - Seizure [Recovering/Resolving]
  - Catarrh [Unknown]

NARRATIVE: CASE EVENT DATE: 20171120
